FAERS Safety Report 16656421 (Version 1)
Quarter: 2019Q3

REPORT INFORMATION
  Report Type: Report from Study
  Country: GB (occurrence: GB)
  Receive Date: 20190801
  Receipt Date: 20190801
  Transmission Date: 20191004
  Serious: Yes (Other)
  Sender: FDA-Public Use
  Company Number: GB-PFIZER INC-2019321294

PATIENT

DRUGS (4)
  1. CISPLATIN. [Suspect]
     Active Substance: CISPLATIN
     Indication: NEOPLASM MALIGNANT
     Dosage: 70 MG/M2, CYCLIC (D8, FOR UP TO 6 X 21D CYCLES)
     Route: 042
  2. FILGRASTIM [Concomitant]
     Active Substance: FILGRASTIM
     Indication: PROPHYLAXIS
     Dosage: 300 UG, CYCLIC (D15-21)
     Route: 058
  3. GEMCITABINE HYDROCHLORIDE. [Suspect]
     Active Substance: GEMCITABINE HYDROCHLORIDE
     Indication: NEOPLASM MALIGNANT
     Dosage: 1000 MG/M2, CYCLIC (DAY (D) 8 +15, FOR UP TO 6 X 21D CYCLES)
     Route: 042
  4. GUADECITABINE [Suspect]
     Active Substance: GUADECITABINE
     Indication: NEOPLASM MALIGNANT
     Dosage: 30 MG/M2, CYCLIC (D1-5, FOR UP TO 6 X 21D CYCLES)
     Route: 058

REACTIONS (2)
  - Diarrhoea [Unknown]
  - Hypokalaemia [Unknown]
